FAERS Safety Report 7586518-1 (Version None)
Quarter: 2011Q3

REPORT INFORMATION
  Report Type: 
  Country: None (occurrence: None)
  Receive Date: 20110701
  Receipt Date: 20110620
  Transmission Date: 20111222
  Serious: Yes (Other)
  Sender: FDA-Public Use
  Company Number: ES-ROCHE-784787

PATIENT
  Age: 81 Year
  Sex: Male

DRUGS (1)
  1. MIRCERA [Suspect]
     Route: 058
     Dates: start: 20100101, end: 20110401

REACTIONS (3)
  - SYNCOPE [None]
  - HEADACHE [None]
  - INFLAMMATION [None]
